FAERS Safety Report 10793190 (Version 1)
Quarter: 2015Q1

REPORT INFORMATION
  Report Type: Spontaneous
  Country: US (occurrence: None)
  Receive Date: 20150212
  Receipt Date: 20150212
  Transmission Date: 20150721
  Serious: Yes (Hospitalization)
  Sender: FDA-Public Use
  Company Number: None

PATIENT
  Sex: Female

DRUGS (4)
  1. EXJADE [Suspect]
     Active Substance: DEFERASIROX
     Indication: MYELODYSPLASTIC SYNDROME
     Route: 048
     Dates: start: 20140605
  2. XANAX [Concomitant]
     Active Substance: ALPRAZOLAM
  3. NIACIN. [Concomitant]
     Active Substance: NIACIN
  4. LISINOPRIL. [Concomitant]
     Active Substance: LISINOPRIL

REACTIONS (4)
  - Haematemesis [None]
  - Diarrhoea [None]
  - Gastric ulcer [None]
  - Blood pressure abnormal [None]
